FAERS Safety Report 15559816 (Version 1)
Quarter: 2018Q4

REPORT INFORMATION
  Report Type: Spontaneous
  Country: JP (occurrence: JP)
  Receive Date: 20181029
  Receipt Date: 20181029
  Transmission Date: 20190205
  Serious: Yes (Death, Other)
  Sender: FDA-Public Use
  Company Number: PHHY2018JP137718

PATIENT
  Age: 68 Year
  Sex: Male

DRUGS (3)
  1. CISPLATIN. [Suspect]
     Active Substance: CISPLATIN
     Indication: SQUAMOUS CELL CARCINOMA OF HEAD AND NECK
     Dosage: 60 MG/M2, UNK (ON DAY 2)
     Route: 040
  2. 5-FLUOROURACIL [Suspect]
     Active Substance: FLUOROURACIL
     Indication: SQUAMOUS CELL CARCINOMA OF HEAD AND NECK
     Dosage: 600-700 MG/M2 (FROM DAY 1 THROUGH DAY 5)
     Route: 042
  3. DOCETAXEL. [Suspect]
     Active Substance: DOCETAXEL
     Indication: SQUAMOUS CELL CARCINOMA OF HEAD AND NECK
     Dosage: 50 MG/M2, UNK (ON DAY 2)
     Route: 040

REACTIONS (4)
  - Hepatic function abnormal [Unknown]
  - Squamous cell carcinoma of head and neck [Fatal]
  - Malignant neoplasm progression [Fatal]
  - Aspartate aminotransferase abnormal [Unknown]
